FAERS Safety Report 17059996 (Version 1)
Quarter: 2019Q4

REPORT INFORMATION
  Report Type: Spontaneous
  Country: US (occurrence: US)
  Receive Date: 20191121
  Receipt Date: 20191121
  Transmission Date: 20200122
  Serious: No
  Sender: FDA-Public Use
  Company Number: US-NOVOPROD-676409

PATIENT
  Age: 70 Year
  Sex: Female

DRUGS (1)
  1. NOVOLOG [Suspect]
     Active Substance: INSULIN ASPART
     Indication: TYPE 1 DIABETES MELLITUS
     Dosage: 6U IN AM AND 10-12U BEFORE LUNCH/DINNER; TREATED HBS WITH 9 UNITS
     Route: 058
     Dates: start: 2014

REACTIONS (3)
  - Nervousness [Recovered/Resolved]
  - Device failure [Unknown]
  - Blood glucose increased [Recovering/Resolving]

NARRATIVE: CASE EVENT DATE: 20190724
